FAERS Safety Report 23381827 (Version 1)
Quarter: 2024Q1

REPORT INFORMATION
  Report Type: Spontaneous
  Country: None (occurrence: UA)
  Receive Date: 20240109
  Receipt Date: 20240109
  Transmission Date: 20240410
  Serious: Yes (Life-Threatening)
  Sender: FDA-Public Use
  Company Number: UA-B.Braun Medical Inc.-2150646

PATIENT
  Age: 27 Year
  Sex: Female

DRUGS (3)
  1. LACTATED RINGERS SOLUTION [Suspect]
     Active Substance: CALCIUM CHLORIDE\POTASSIUM CHLORIDE\SODIUM CHLORIDE\SODIUM LACTATE
     Indication: Electrolyte imbalance
     Route: 042
     Dates: start: 20231026, end: 20231026
  2. PROPOFOL LIPURO [Suspect]
     Active Substance: PROPOFOL
  3. OXYTOCIN [Concomitant]
     Active Substance: OXYTOCIN

REACTIONS (6)
  - Disseminated intravascular coagulation [None]
  - Uterine haemorrhage [None]
  - Hysterectomy [None]
  - Tremor [None]
  - Hyperthermia [None]
  - Maternal exposure during pregnancy [None]
